FAERS Safety Report 12582166 (Version 1)
Quarter: 2016Q3

REPORT INFORMATION
  Report Type: Spontaneous
  Country: US (occurrence: None)
  Receive Date: 20160721
  Receipt Date: 20160721
  Transmission Date: 20161109
  Serious: Yes (Other)
  Sender: FDA-Public Use
  Company Number: None

PATIENT
  Age: 66 Year
  Weight: 45.36 kg

DRUGS (1)
  1. VALSARTAN, 40 MG MYLAN [Suspect]
     Active Substance: VALSARTAN
     Indication: BLOOD PRESSURE MEASUREMENT
     Route: 048
     Dates: start: 20160630, end: 20160718

REACTIONS (8)
  - Cough [None]
  - Diarrhoea [None]
  - Nausea [None]
  - Dysphagia [None]
  - Muscle fatigue [None]
  - Vision blurred [None]
  - Skin exfoliation [None]
  - Balance disorder [None]

NARRATIVE: CASE EVENT DATE: 20160701
